FAERS Safety Report 9632432 (Version 1)
Quarter: 2013Q4

REPORT INFORMATION
  Report Type: Spontaneous
  Country: US (occurrence: US)
  Receive Date: 20131018
  Receipt Date: 20131018
  Transmission Date: 20140711
  Serious: No
  Sender: FDA-Public Use
  Company Number: US-PFIZER INC-2013296653

PATIENT
  Age: 54 Year
  Sex: Male

DRUGS (8)
  1. XELJANZ [Suspect]
     Indication: RHEUMATOID ARTHRITIS
     Dosage: 5MG (1 TABLET) TWICE DAILY
     Route: 048
     Dates: start: 20130314
  2. METHOTREXATE [Concomitant]
     Dosage: 2.5 MG
  3. FOLIC ACID [Concomitant]
     Dosage: 1 MG
  4. TRAZODONE [Concomitant]
     Dosage: 100 MG
  5. OXYCODONE-ACETAMINOPHEN [Concomitant]
     Dosage: OXYCODONE HYDROCHLORIDE 5- PARACETAMOL 325, UNK
  6. VITAMIN C [Concomitant]
     Dosage: 1000MG
  7. CALCIUM 600 + D [Concomitant]
     Dosage: UNK
  8. ASA EC [Concomitant]
     Dosage: 81 MG

REACTIONS (3)
  - Dizziness [Unknown]
  - Nausea [Unknown]
  - Vision blurred [Unknown]
